FAERS Safety Report 5568102-4 (Version None)
Quarter: 2007Q4

REPORT INFORMATION
  Report Type: 
  Country: None (occurrence: None)
  Receive Date: 20071220
  Receipt Date: 20071213
  Transmission Date: 20080405
  Serious: Yes (Other)
  Sender: FDA-Public Use
  Company Number: US-JNJFOC-20071204130

PATIENT
  Sex: Male
  Weight: 88.45 kg

DRUGS (4)
  1. TOPAMAX [Suspect]
     Route: 048
  2. TOPAMAX [Suspect]
     Indication: WEIGHT LOSS DIET
     Route: 048
  3. SEROQUEL [Concomitant]
  4. APRAZOLAM [Concomitant]

REACTIONS (2)
  - APHASIA [None]
  - INTENTIONAL DRUG MISUSE [None]
